FAERS Safety Report 26052420 (Version 1)
Quarter: 2025Q4

REPORT INFORMATION
  Report Type: Other
  Country: GB (occurrence: GB)
  Receive Date: 20251117
  Receipt Date: 20251117
  Transmission Date: 20260117
  Serious: Yes (Other)
  Sender: MACLEODS
  Company Number: None

PATIENT

DRUGS (2)
  1. PANTOPRAZOLE [Suspect]
     Active Substance: PANTOPRAZOLE
     Indication: Product used for unknown indication
     Dosage: 40MG OD
     Dates: start: 20250709, end: 20251103
  2. NIZATIDINE [Concomitant]
     Active Substance: NIZATIDINE
     Indication: Product used for unknown indication
     Dates: start: 20250925

REACTIONS (3)
  - Muscular weakness [Unknown]
  - Glossodynia [Unknown]
  - Back pain [Unknown]
